FAERS Safety Report 8143969-4 (Version None)
Quarter: 2012Q1

REPORT INFORMATION
  Report Type: 
  Country: None (occurrence: None)
  Receive Date: 20120217
  Receipt Date: 20120217
  Transmission Date: 20120608
  Serious: Yes (Other)
  Sender: FDA-Public Use
  Company Number: None

PATIENT
  Age: 55 Year
  Sex: Male

DRUGS (2)
  1. MIRTAZAPINE [Concomitant]
     Indication: DEPRESSION
  2. TRAMADOL HCL [Suspect]
     Indication: PAIN

REACTIONS (5)
  - HYPERHIDROSIS [None]
  - SEROTONIN SYNDROME [None]
  - HEADACHE [None]
  - ERYTHEMA [None]
  - MALAISE [None]
